FAERS Safety Report 8276702-6 (Version None)
Quarter: 2012Q2

REPORT INFORMATION
  Report Type: 
  Country: None (occurrence: None)
  Receive Date: 20120412
  Receipt Date: 20120412
  Transmission Date: 20120825
  Serious: No
  Sender: FDA-Public Use
  Company Number: None

PATIENT
  Age: 24 Year
  Sex: Male
  Weight: 76.2 kg

DRUGS (2)
  1. ROCURONIUM BROMIDE [Suspect]
     Indication: NEUROMUSCULAR BLOCKING THERAPY
     Dosage: 40MG + 20MG + 10MG= 70MG
     Route: 040
     Dates: start: 20120409, end: 20120409
  2. ROCURONIUM BROMIDE [Suspect]
     Indication: SPLENECTOMY
     Dosage: 40MG + 20MG + 10MG= 70MG
     Route: 040
     Dates: start: 20120409, end: 20120409

REACTIONS (2)
  - PRODUCT MEASURED POTENCY ISSUE [None]
  - MUSCLE TIGHTNESS [None]
